FAERS Safety Report 19025571 (Version 1)
Quarter: 2021Q1

REPORT INFORMATION
  Report Type: Spontaneous
  Country: US (occurrence: US)
  Receive Date: 20210318
  Receipt Date: 20210318
  Transmission Date: 20210420
  Serious: Yes (Other)
  Sender: FDA-Public Use
  Company Number: None

PATIENT
  Age: 50 Year
  Sex: Female
  Weight: 98.55 kg

DRUGS (5)
  1. BENADRYL 25 MG PO, PRE?MED [Concomitant]
  2. SODIUM CHLORIDE 0.45%/1000ML PRIOR TO IVIG [Concomitant]
  3. SOLUMEDROL 30MG IV PRE?MED [Concomitant]
  4. TYLENOL 500 MG PO, PRE?MED [Concomitant]
  5. OCTAGAM IMMUNE GLOBULIN (HUMAN) [Suspect]
     Active Substance: HUMAN IMMUNOGLOBULIN G
     Indication: SYSTEMIC SCLERODERMA
     Dosage: ?          OTHER FREQUENCY:FOR 2 DAYS Q 4 WKS;?
     Route: 042
     Dates: start: 20200618

REACTIONS (5)
  - Flushing [None]
  - Sensation of foreign body [None]
  - Blood pressure diastolic increased [None]
  - Product quality issue [None]
  - Infusion related reaction [None]

NARRATIVE: CASE EVENT DATE: 20210311
